FAERS Safety Report 4490891-0 (Version None)
Quarter: 2004Q4

REPORT INFORMATION
  Report Type: 
  Country: None (occurrence: None)
  Receive Date: 20041027
  Receipt Date: 20041013
  Transmission Date: 20050328
  Serious: Yes (Hospitalization)
  Sender: FDA-Public Use
  Company Number: 2004238948NL

PATIENT
  Age: 72 Year
  Sex: Male
  Weight: 71 kg

DRUGS (3)
  1. DETRUSITOL [Suspect]
     Indication: HYPERTONIC BLADDER
     Dosage: 2 MG, QD, ORAL
     Route: 048
     Dates: start: 20040201, end: 20040401
  2. DETRUSITOL [Suspect]
     Indication: HYPERTONIC BLADDER
     Dosage: 2 MG, QD, ORAL
     Route: 048
     Dates: start: 20040427, end: 20040708
  3. ACENOCOUMAROL [Concomitant]

REACTIONS (2)
  - DIARRHOEA [None]
  - MUSCLE CRAMP [None]
